FAERS Safety Report 13984845 (Version 2)
Quarter: 2018Q3

REPORT INFORMATION
  Report Type: Spontaneous
  Country: GB (occurrence: GB)
  Receive Date: 20170918
  Receipt Date: 20180716
  Transmission Date: 20181010
  Serious: Yes (Other)
  Sender: FDA-Public Use
  Company Number: GB-TEVA-805468ACC

PATIENT
  Age: 30 Year
  Sex: Male

DRUGS (3)
  1. CIPROFLOXACIN. [Suspect]
     Active Substance: CIPROFLOXACIN
     Indication: PROSTATITIS
     Route: 048
     Dates: start: 201604
  2. CIPROFLOXACIN. [Suspect]
     Active Substance: CIPROFLOXACIN
     Indication: PROSTATITIS
     Route: 048
     Dates: start: 201702
  3. LEVOFLOXACIN. [Concomitant]
     Active Substance: LEVOFLOXACIN

REACTIONS (14)
  - Feeling abnormal [Not Recovered/Not Resolved]
  - Peripheral coldness [Recovered/Resolved]
  - Neuropathy peripheral [Not Recovered/Not Resolved]
  - Tendon rupture [Unknown]
  - Headache [Unknown]
  - Dysgeusia [Not Recovered/Not Resolved]
  - Arrhythmia [Recovered/Resolved]
  - Diarrhoea [Not Recovered/Not Resolved]
  - Osteoarthritis [Unknown]
  - Gluten sensitivity [Unknown]
  - Nausea [Not Recovered/Not Resolved]
  - Palpitations [Not Recovered/Not Resolved]
  - Hypoaesthesia [Recovered/Resolved]
  - Hyperhidrosis [Not Recovered/Not Resolved]
